FAERS Safety Report 7933156-4 (Version None)
Quarter: 2011Q4

REPORT INFORMATION
  Report Type: 
  Country: None (occurrence: None)
  Receive Date: 20111122
  Receipt Date: 20111118
  Transmission Date: 20120403
  Serious: Yes (Life-Threatening, Hospitalization, Other)
  Sender: FDA-Public Use
  Company Number: PHHY2011AR89100

PATIENT
  Sex: Female

DRUGS (1)
  1. EXFORGE [Suspect]
     Indication: HYPERTENSION
     Dosage: 1 DF, (VALSARTAN 320 MG/AMLODIPINE 5 MG), QD
     Dates: start: 20110907

REACTIONS (8)
  - DIABETES MELLITUS [None]
  - FEELING ABNORMAL [None]
  - BRONCHITIS [None]
  - TREMOR [None]
  - ASTHENIA [None]
  - BLOOD GLUCOSE INCREASED [None]
  - CONDITION AGGRAVATED [None]
  - BLOOD GLUCOSE DECREASED [None]
